FAERS Safety Report 19492568 (Version 1)
Quarter: 2021Q3

REPORT INFORMATION
  Report Type: Spontaneous
  Country: US (occurrence: US)
  Receive Date: 20210705
  Receipt Date: 20210705
  Transmission Date: 20211014
  Serious: No
  Sender: FDA-Public Use
  Company Number: US-RECKITT BENCKISER HEALTHCARE INT LIMITED-RB-84863-2021

PATIENT
  Age: 80 Year
  Sex: Female

DRUGS (2)
  1. MUCINEX [Suspect]
     Active Substance: GUAIFENESIN
     Indication: COUGH
     Dosage: STARTED TO DRINK THE PRODUCT OUT OF THE BOTTLE.
     Route: 048
     Dates: start: 202102, end: 20210225
  2. MUCINEX [Suspect]
     Active Substance: GUAIFENESIN
     Indication: RESPIRATORY TRACT CONGESTION
     Dosage: 20 MILLILITER, EVERY 4 HOURS
     Route: 048
     Dates: start: 20210222, end: 202102

REACTIONS (5)
  - Lip swelling [Recovering/Resolving]
  - Lip pruritus [Not Recovered/Not Resolved]
  - Swollen tongue [Recovering/Resolving]
  - Underdose [Not Recovered/Not Resolved]
  - Wrong technique in product usage process [Not Recovered/Not Resolved]

NARRATIVE: CASE EVENT DATE: 20210224
